FAERS Safety Report 15950775 (Version 2)
Quarter: 2019Q1

REPORT INFORMATION
  Report Type: Spontaneous
  Country: US (occurrence: US)
  Receive Date: 20190212
  Receipt Date: 20190227
  Transmission Date: 20190417
  Serious: Yes (Other)
  Sender: FDA-Public Use
  Company Number: US-PFIZER INC-2019059994

PATIENT
  Age: 44 Year
  Sex: Female

DRUGS (4)
  1. CYTOXAN [Suspect]
     Active Substance: CYCLOPHOSPHAMIDE
     Dosage: UNK
  2. CARBOPLATIN. [Concomitant]
     Active Substance: CARBOPLATIN
     Dosage: UNK
  3. ADRIAMYCIN [Suspect]
     Active Substance: DOXORUBICIN HYDROCHLORIDE
     Indication: TRIPLE NEGATIVE BREAST CANCER
     Dosage: UNK
  4. HAVLANE [Concomitant]
     Active Substance: LOPRAZOLAM
     Dosage: UNK

REACTIONS (7)
  - Pollakiuria [Unknown]
  - Malaise [Unknown]
  - Gait disturbance [Unknown]
  - Blood electrolytes decreased [Unknown]
  - Neoplasm progression [Unknown]
  - Seizure [Unknown]
  - Blood sodium decreased [Unknown]
